FAERS Safety Report 16599918 (Version 8)
Quarter: 2022Q4

REPORT INFORMATION
  Report Type: Report from Study
  Country: RU (occurrence: RU)
  Receive Date: 20190720
  Receipt Date: 20221130
  Transmission Date: 20230113
  Serious: Yes (Death, Hospitalization, Other)
  Sender: FDA-Public Use
  Company Number: RU-ABBVIE-19K-251-2856668-00

PATIENT
  Age: 61 Year
  Sex: Male
  Weight: 78 kg

DRUGS (13)
  1. VENCLEXTA [Suspect]
     Active Substance: VENETOCLAX
     Indication: Chronic lymphocytic leukaemia recurrent
     Dosage: 20 MILLIGRAM
     Route: 048
     Dates: start: 20190320, end: 20190326
  2. VENCLEXTA [Suspect]
     Active Substance: VENETOCLAX
     Indication: Chronic lymphocytic leukaemia recurrent
     Dosage: 50 MILLIGRAM
     Route: 048
     Dates: start: 20190327, end: 20190402
  3. VENCLEXTA [Suspect]
     Active Substance: VENETOCLAX
     Indication: Chronic lymphocytic leukaemia recurrent
     Dosage: 100 MILLIGRAM
     Route: 048
     Dates: start: 20190403, end: 20190409
  4. VENCLEXTA [Suspect]
     Active Substance: VENETOCLAX
     Indication: Chronic lymphocytic leukaemia recurrent
     Dosage: 200 MILLIGRAM
     Route: 048
     Dates: start: 20190410, end: 20190413
  5. VENCLEXTA [Suspect]
     Active Substance: VENETOCLAX
     Indication: Chronic lymphocytic leukaemia recurrent
     Dosage: 200 MILLIGRAM
     Route: 048
     Dates: start: 20190418, end: 20190424
  6. VENCLEXTA [Suspect]
     Active Substance: VENETOCLAX
     Indication: Chronic lymphocytic leukaemia recurrent
     Dosage: 400 MILLIGRAM
     Route: 048
     Dates: start: 20190425, end: 20200506
  7. VENCLEXTA [Suspect]
     Active Substance: VENETOCLAX
     Indication: Chronic lymphocytic leukaemia recurrent
     Route: 048
     Dates: start: 20220420
  8. ASPIRIN [Concomitant]
     Active Substance: ASPIRIN
     Indication: Thrombosis prophylaxis
     Dosage: 0.125 GRAM
     Route: 048
  9. ALLOPURINOL [Concomitant]
     Active Substance: ALLOPURINOL
     Indication: Prophylaxis
     Dosage: 300, UNITS NOT SPECIFIED
     Route: 048
  10. CEFTRIAXONE [Concomitant]
     Active Substance: CEFTRIAXONE
     Indication: Chronic lymphocytic leukaemia
     Route: 042
     Dates: start: 20190413, end: 20190417
  11. CEFTRIAXONE [Concomitant]
     Active Substance: CEFTRIAXONE
     Indication: Chronic lymphocytic leukaemia
     Route: 042
     Dates: start: 20191210, end: 20191217
  12. METRONIDAZOLE [Concomitant]
     Active Substance: METRONIDAZOLE
     Indication: Antibiotic prophylaxis
     Dosage: ONCE?0.5 GRAM
     Route: 042
     Dates: start: 20190413, end: 20190413
  13. NOXAFIL [Concomitant]
     Active Substance: POSACONAZOLE
     Indication: Pneumonia
     Route: 048
     Dates: start: 20191210, end: 20191217

REACTIONS (3)
  - Prostate cancer [Fatal]
  - Appendicitis [Recovered/Resolved]
  - Pneumonia [Recovered/Resolved]

NARRATIVE: CASE EVENT DATE: 20190413
